FAERS Safety Report 8501489-9 (Version None)
Quarter: 2012Q3

REPORT INFORMATION
  Report Type: 
  Country: None (occurrence: None)
  Receive Date: 20120710
  Receipt Date: 20120705
  Transmission Date: 20120928
  Serious: Yes (Hospitalization)
  Sender: FDA-Public Use
  Company Number: BR-GILEAD-2011-0045895

PATIENT
  Sex: Male

DRUGS (8)
  1. TENOFOVIR DISOPROXIL FUMARATE [Suspect]
     Indication: HIV INFECTION
     Dosage: 300 MG, QD
     Dates: start: 20110328
  2. LAMIVUDINE [Suspect]
     Indication: HIV INFECTION
     Dosage: 300 MG, QD
     Dates: start: 20110328
  3. RIFAMPIN [Concomitant]
     Indication: TUBERCULOSIS
     Dosage: 600 MG, UNK
     Dates: start: 20110210
  4. ISONIAZID [Concomitant]
     Indication: TUBERCULOSIS
     Dosage: 300 MG, UNK
     Dates: start: 20110210
  5. PYRAZINAMIDE [Concomitant]
     Indication: TUBERCULOSIS
     Dosage: UNK UNKNOWN, UNK
     Dates: start: 20110210
  6. PYRIDOXINE [Concomitant]
     Dosage: 40 MG, UNK
     Dates: start: 20110301
  7. RALTEGRAVIR [Suspect]
     Indication: HIV INFECTION
     Dosage: UNK UNKNOWN, UNK
     Dates: start: 20110328
  8. ETHAMBUTOL HYDROCHLORIDE [Concomitant]
     Indication: TUBERCULOSIS
     Dosage: UNK UNKNOWN, UNK
     Dates: start: 20110210

REACTIONS (4)
  - DYSPNOEA [None]
  - PYREXIA [None]
  - IMMUNE RECONSTITUTION SYNDROME [None]
  - COUGH [None]
